FAERS Safety Report 8321101-1 (Version None)
Quarter: 2012Q2

REPORT INFORMATION
  Report Type: 
  Country: None (occurrence: None)
  Receive Date: 20120430
  Receipt Date: 20120420
  Transmission Date: 20120825
  Serious: Yes (Hospitalization)
  Sender: FDA-Public Use
  Company Number: DE-JNJFOC-20120302008

PATIENT
  Sex: Female
  Weight: 82 kg

DRUGS (3)
  1. BISOPROLOL FUMARATE [Concomitant]
  2. XARELTO [Suspect]
     Indication: FACTOR II MUTATION
     Route: 048
     Dates: end: 20120224
  3. LEVOTHYROXINE SODIUM [Concomitant]

REACTIONS (6)
  - ANGINA PECTORIS [None]
  - NECK PAIN [None]
  - ANXIETY [None]
  - PAIN IN JAW [None]
  - PAIN IN EXTREMITY [None]
  - DIZZINESS [None]
